FAERS Safety Report 13224610 (Version 1)
Quarter: 2017Q1

REPORT INFORMATION
  Report Type: Spontaneous
  Country: FR (occurrence: FR)
  Receive Date: 20170213
  Receipt Date: 20170213
  Transmission Date: 20170428
  Serious: Yes (Hospitalization)
  Sender: FDA-Public Use
  Company Number: FR-ROCHE-1891181

PATIENT
  Age: 88 Year
  Sex: Male

DRUGS (11)
  1. INEXIUM [Concomitant]
     Active Substance: ESOMEPRAZOLE
     Dosage: LONG-TERM TREATMENT FOR THE THREE
     Route: 065
  2. SYMBICORT [Concomitant]
     Active Substance: BUDESONIDE\FORMOTEROL FUMARATE DIHYDRATE
  3. JOSIR [Concomitant]
     Active Substance: TAMSULOSIN
     Dosage: NOT FOUND AT ARRIVAL BUT PRESCRIBED FROM 16-JAN AND STILL ONGOING
     Route: 065
  4. ATROVENT [Concomitant]
     Active Substance: IPRATROPIUM BROMIDE
  5. ISOPRINE [Suspect]
     Active Substance: ISOXSUPRINE HYDROCHLORIDE
     Indication: TACHYCARDIA
     Route: 048
     Dates: start: 20170120, end: 20170122
  6. SPASFON (FRANCE) [Concomitant]
     Active Substance: PHLOROGLUCINOL
     Dosage: SINCE 19-JAN AND STILL ONGOING
     Route: 065
  7. LASILIX [Concomitant]
     Active Substance: FUROSEMIDE
     Route: 065
     Dates: end: 20170118
  8. VENTOLINE [Concomitant]
     Active Substance: ALBUTEROL
     Dosage: 14-JAN TO 18-JAN
     Route: 065
  9. SPIRIVA [Concomitant]
     Active Substance: TIOTROPIUM BROMIDE MONOHYDRATE
  10. TAMIFLU [Suspect]
     Active Substance: OSELTAMIVIR PHOSPHATE
     Indication: INFLUENZA
     Route: 048
     Dates: start: 20170116, end: 20170122
  11. ISOPTINE [Suspect]
     Active Substance: VERAPAMIL HYDROCHLORIDE
     Indication: TACHYCARDIA
     Route: 048
     Dates: start: 20170121, end: 20170122

REACTIONS (4)
  - Sinus bradycardia [Recovered/Resolved]
  - Cardiogenic shock [Recovered/Resolved]
  - Respiratory distress [None]
  - Atrial fibrillation [None]

NARRATIVE: CASE EVENT DATE: 20170122
